FAERS Safety Report 11043214 (Version 1)
Quarter: 2015Q2

REPORT INFORMATION
  Report Type: Other
  Country: GB (occurrence: GB)
  Receive Date: 20150417
  Receipt Date: 20150417
  Transmission Date: 20150821
  Serious: Yes (Hospitalization, Other)
  Sender: FDA-Public Use
  Company Number: GB-MYLANLABS-2015M1011589

PATIENT

DRUGS (8)
  1. AVASTIN [Suspect]
     Active Substance: BEVACIZUMAB
     Indication: GASTRIC CANCER
     Dosage: 545 MG, UNK (DATE OF MOST RECENT DOSE: 28/JAN/2013.)
     Route: 042
     Dates: start: 20121127
  2. SIMVASTATIN. [Concomitant]
     Active Substance: SIMVASTATIN
     Dosage: UNK
     Route: 048
     Dates: start: 20070112
  3. PARACETAMOL [Concomitant]
     Active Substance: ACETAMINOPHEN
     Dosage: UNK
     Route: 042
     Dates: start: 20130326, end: 20130426
  4. XELODA [Suspect]
     Active Substance: CAPECITABINE
     Indication: GASTRIC CANCER
     Dosage: UNK (DATE OF MOST RECENT DOSE: 19/FEB/2013; DOSE: 1000 MG AM AND 1500 MG PM)
     Route: 048
     Dates: start: 20121127
  5. NITROFURANTOIN. [Concomitant]
     Active Substance: NITROFURANTOIN
     Dosage: UNK
     Route: 048
     Dates: start: 20130716
  6. CISPLATIN. [Suspect]
     Active Substance: CISPLATIN
     Indication: GASTRIC CANCER
     Dosage: 110 MG, UNK (DATE OF MOST RECENT DOSE: 28/JAN/2013.)
     Route: 042
     Dates: start: 20121127
  7. TAZOCIN [Concomitant]
     Active Substance: PIPERACILLIN SODIUM\TAZOBACTAM SODIUM
     Dosage: UNK
     Route: 042
  8. EPIRUBICIN [Suspect]
     Active Substance: EPIRUBICIN
     Indication: GASTRIC CANCER
     Dosage: 46 MG, UNK (DATE OF MOST RECENT DOSE: 12/JUL/2013)
     Route: 042
     Dates: start: 20121127

REACTIONS (2)
  - Pulmonary embolism [Not Recovered/Not Resolved]
  - Anastomotic leak [Recovered/Resolved with Sequelae]

NARRATIVE: CASE EVENT DATE: 20130404
